FAERS Safety Report 9387784 (Version 1)
Quarter: 2013Q3

REPORT INFORMATION
  Report Type: Spontaneous
  Country: FR (occurrence: None)
  Receive Date: 20130701
  Receipt Date: 20130701
  Transmission Date: 20140515
  Serious: Yes (Death, Other)
  Sender: FDA-Public Use
  Company Number: SYM-2013-05198

PATIENT
  Age: 65 Year
  Sex: 0

DRUGS (3)
  1. FLUOROURACIL [Suspect]
     Indication: COLORECTAL CANCER
  2. OXALIPLATIN [Suspect]
     Indication: COLORECTAL CANCER
  3. FOLINIC ACID [Suspect]
     Indication: COLORECTAL CANCER

REACTIONS (6)
  - Renal failure [None]
  - Febrile neutropenia [None]
  - Sepsis [None]
  - Diarrhoea [None]
  - Dehydration [None]
  - Mucosal inflammation [None]
